FAERS Safety Report 7056353-1 (Version None)
Quarter: 2010Q4

REPORT INFORMATION
  Report Type: 
  Country: None (occurrence: None)
  Receive Date: 20101021
  Receipt Date: 20101014
  Transmission Date: 20110411
  Serious: Yes (Hospitalization)
  Sender: FDA-Public Use
  Company Number: US-ABBOTT-10P-163-0677681-00

PATIENT
  Sex: Female
  Weight: 58.566 kg

DRUGS (2)
  1. MERIDIA [Suspect]
     Indication: INCREASED APPETITE
     Route: 048
  2. MERIDIA [Suspect]
     Dates: start: 20090401

REACTIONS (8)
  - BLOOD PRESSURE INCREASED [None]
  - CONVERSION DISORDER [None]
  - DIZZINESS [None]
  - DYSPNOEA [None]
  - PAIN [None]
  - PALPITATIONS [None]
  - TREMOR [None]
  - URINARY INCONTINENCE [None]
